FAERS Safety Report 15930461 (Version 2)
Quarter: 2019Q1

REPORT INFORMATION
  Report Type: Spontaneous
  Country: US (occurrence: US)
  Receive Date: 20190207
  Receipt Date: 20190324
  Transmission Date: 20190417
  Serious: No
  Sender: FDA-Public Use
  Company Number: US-TEVA-2019-US-1009999

PATIENT
  Age: 42 Year

DRUGS (5)
  1. MELOXICAM. [Concomitant]
     Active Substance: MELOXICAM
  2. SUMATRIPTAN. [Concomitant]
     Active Substance: SUMATRIPTAN
     Indication: MIGRAINE
  3. SAVELLA [Concomitant]
     Active Substance: MILNACIPRAN HYDROCHLORIDE
  4. NORTRIPTYLINE [Concomitant]
     Active Substance: NORTRIPTYLINE
     Dosage: 30 MILLIGRAM DAILY;
  5. AJOVY [Suspect]
     Active Substance: FREMANEZUMAB-VFRM
     Route: 065

REACTIONS (9)
  - Dysgeusia [Recovered/Resolved]
  - Product physical issue [Unknown]
  - Pain [Recovered/Resolved with Sequelae]
  - Nausea [Unknown]
  - Condition aggravated [Unknown]
  - Needle issue [Unknown]
  - Product use complaint [Unknown]
  - Malaise [Unknown]
  - Discomfort [Unknown]

NARRATIVE: CASE EVENT DATE: 2019
